FAERS Safety Report 6039677-6 (Version None)
Quarter: 2009Q1

REPORT INFORMATION
  Report Type: 
  Country: None (occurrence: None)
  Receive Date: 20090116
  Receipt Date: 20090113
  Transmission Date: 20090719
  Serious: Yes (Hospitalization)
  Sender: FDA-Public Use
  Company Number: BE-BRISTOL-MYERS SQUIBB COMPANY-14471551

PATIENT
  Sex: Male

DRUGS (2)
  1. ABILIFY [Suspect]
  2. LAMISIL [Suspect]

REACTIONS (1)
  - PSYCHOTIC DISORDER [None]
